FAERS Safety Report 19147182 (Version 1)
Quarter: 2021Q2

REPORT INFORMATION
  Report Type: Spontaneous
  Country: IT (occurrence: IT)
  Receive Date: 20210416
  Receipt Date: 20210416
  Transmission Date: 20210717
  Serious: Yes (Life-Threatening)
  Sender: FDA-Public Use
  Company Number: IT-MYLANLABS-2021M1022393

PATIENT
  Age: 64 Year
  Sex: Male

DRUGS (5)
  1. ENOXAPARIN [Suspect]
     Active Substance: ENOXAPARIN
     Indication: COVID-19
     Dosage: 6000 INTERNATIONAL UNIT, BID (6000 U X2)
     Route: 058
  2. HYDROXYCHLOROQUINE [Suspect]
     Active Substance: HYDROXYCHLOROQUINE
     Indication: COVID-19
     Dosage: 1 DOSAGE FORM, BID
     Route: 048
  3. PREDNISONE. [Suspect]
     Active Substance: PREDNISONE
     Indication: COVID-19
     Dosage: 1 DOSAGE FORM
     Route: 048
  4. TOCILIZUMAB. [Suspect]
     Active Substance: TOCILIZUMAB
     Indication: COVID-19
     Dosage: 200 MILLIGRAM
     Route: 042
     Dates: start: 20210316, end: 20210317
  5. LOPINAVIR/RITONAVIR [Suspect]
     Active Substance: LOPINAVIR\RITONAVIR
     Indication: COVID-19
     Dosage: 2 DOSAGE FORM, BID
     Route: 048

REACTIONS (3)
  - Drug ineffective for unapproved indication [Unknown]
  - Oxygen saturation decreased [Recovered/Resolved]
  - Respiratory rate increased [Recovered/Resolved]

NARRATIVE: CASE EVENT DATE: 20200317
